FAERS Safety Report 5722281-4 (Version None)
Quarter: 2008Q2

REPORT INFORMATION
  Report Type: 
  Country: None (occurrence: None)
  Receive Date: 20080424
  Receipt Date: 20080411
  Transmission Date: 20081010
  Serious: Yes (Hospitalization)
  Sender: FDA-Public Use
  Company Number: 2007002459

PATIENT
  Age: 61 Year
  Sex: Male

DRUGS (5)
  1. ERLOTINIB (ERLOTINIB HCI) [Suspect]
     Indication: NON-SMALL CELL LUNG CANCER
     Dosage: 150 MG, QD, ORAL
     Route: 048
     Dates: start: 20071022, end: 20071202
  2. BEVACIZUMAB [Suspect]
     Indication: NON-SMALL CELL LUNG CANCER
     Dosage: 1 X PER 3 WEEK, INTRAVENOUS
     Route: 042
     Dates: start: 20071022
  3. SERETIDE (SERETIDE) [Concomitant]
  4. CO-AMOXI-MEPHA [Concomitant]
  5. DIAMICRON (GLICLAZIDE) [Concomitant]

REACTIONS (4)
  - BRONCHITIS [None]
  - BRONCHOPNEUMONIA [None]
  - PNEUMOMEDIASTINUM [None]
  - PULMONARY BULLA [None]
